FAERS Safety Report 6608048-3 (Version None)
Quarter: 2010Q1

REPORT INFORMATION
  Report Type: 
  Country: None (occurrence: None)
  Receive Date: 20100301
  Receipt Date: 20100218
  Transmission Date: 20100710
  Serious: Yes (Hospitalization)
  Sender: FDA-Public Use
  Company Number: US-BRISTOL-MYERS SQUIBB COMPANY-14878300

PATIENT
  Age: 81 Year
  Sex: Female
  Weight: 72 kg

DRUGS (14)
  1. CARBOPLATIN [Suspect]
     Indication: NON-SMALL CELL LUNG CANCER
     Route: 042
     Dates: start: 20091013, end: 20091103
  2. PEMETREXED DISODIUM [Suspect]
     Indication: NON-SMALL CELL LUNG CANCER
     Route: 042
     Dates: start: 20091013, end: 20091103
  3. BEVACIZUMAB [Suspect]
     Indication: NON-SMALL CELL LUNG CANCER
     Route: 042
     Dates: start: 20091013, end: 20091103
  4. METOPROLOL SUCCINATE [Concomitant]
     Indication: SYNCOPE
     Dates: start: 19990101
  5. OMEPRAZOLE [Concomitant]
     Indication: GASTROOESOPHAGEAL REFLUX DISEASE
     Dates: start: 20090801
  6. DONEPEZIL HCL [Concomitant]
     Indication: AMNESIA
     Dates: start: 20090801
  7. CLONAZEPAM [Concomitant]
     Indication: TENSION HEADACHE
     Dates: start: 20090901
  8. MULTI-VITAMIN [Concomitant]
  9. VITAMIN B-12 [Concomitant]
     Dates: start: 20091005
  10. FOLIC ACID [Concomitant]
     Dates: start: 20091006
  11. LIPITOR [Concomitant]
  12. MACROBID [Concomitant]
  13. NEXIUM [Concomitant]
  14. METOCLOPRAMIDE HYDROCHLORIDE [Concomitant]

REACTIONS (2)
  - AMAUROSIS FUGAX [None]
  - TRANSIENT ISCHAEMIC ATTACK [None]
